FAERS Safety Report 6439624-9 (Version None)
Quarter: 2009Q4

REPORT INFORMATION
  Report Type: 
  Country: None (occurrence: None)
  Receive Date: 20091113
  Receipt Date: 20091105
  Transmission Date: 20100525
  Serious: Yes (Other)
  Sender: FDA-Public Use
  Company Number: FR-JNJFOC-20091102515

PATIENT
  Age: 43 Year
  Sex: Female

DRUGS (3)
  1. RISPERDAL CONSTA [Suspect]
     Route: 030
     Dates: start: 20080401, end: 20090101
  2. RISPERDAL CONSTA [Suspect]
     Indication: SCHIZOPHRENIA
     Route: 030
     Dates: start: 20080401, end: 20090101
  3. FENOFIBRATE [Concomitant]
     Route: 065

REACTIONS (3)
  - FACE OEDEMA [None]
  - PRURITUS [None]
  - RASH ERYTHEMATOUS [None]
